FAERS Safety Report 5456216-9 (Version None)
Quarter: 2007Q3

REPORT INFORMATION
  Report Type: 
  Country: None (occurrence: None)
  Receive Date: 20070914
  Receipt Date: 20070914
  Transmission Date: 20080115
  Serious: Yes (Hospitalization)
  Sender: FDA-Public Use
  Company Number: None

PATIENT
  Sex: Female
  Weight: 81 kg

DRUGS (1)
  1. TAXOL [Suspect]
     Dosage: 332 MG

REACTIONS (3)
  - ANAEMIA [None]
  - PERICARDIAL EFFUSION [None]
  - PNEUMONITIS [None]
